FAERS Safety Report 14152584 (Version 1)
Quarter: 2017Q4

REPORT INFORMATION
  Report Type: Spontaneous
  Country: US (occurrence: US)
  Receive Date: 20171102
  Receipt Date: 20171102
  Transmission Date: 20180321
  Serious: Yes (Other)
  Sender: FDA-Public Use
  Company Number: None

PATIENT
  Age: 35 Year
  Sex: Female
  Weight: 60.75 kg

DRUGS (7)
  1. MELOXICAM. [Concomitant]
     Active Substance: MELOXICAM
  2. CYCLOBENAZEPRINE [Suspect]
     Active Substance: CYCLOBENZAPRINE
     Indication: MUSCLE INJURY
     Dosage: ?          QUANTITY:20 TABLET(S);?
     Route: 048
  3. VITAMIN D [Concomitant]
     Active Substance: CHOLECALCIFEROL
  4. FISH OIL [Concomitant]
     Active Substance: FISH OIL
  5. CYCLOBENAZEPRINE [Suspect]
     Active Substance: CYCLOBENZAPRINE
     Indication: MUSCLE SPASMS
     Dosage: ?          QUANTITY:20 TABLET(S);?
     Route: 048
  6. BUPROPION. [Concomitant]
     Active Substance: BUPROPION
  7. VITAMIN C [Concomitant]
     Active Substance: ASCORBIC ACID

REACTIONS (6)
  - Dizziness [None]
  - Depression suicidal [None]
  - Therapy cessation [None]
  - Influenza like illness [None]
  - Nausea [None]
  - Decreased appetite [None]

NARRATIVE: CASE EVENT DATE: 20171029
